FAERS Safety Report 7844378-5 (Version None)
Quarter: 2011Q4

REPORT INFORMATION
  Report Type: 
  Country: None (occurrence: None)
  Receive Date: 20111025
  Receipt Date: 20111019
  Transmission Date: 20120403
  Serious: Yes (Hospitalization)
  Sender: FDA-Public Use
  Company Number: JP-PFIZER INC-2011223630

PATIENT
  Age: 45 Year
  Sex: Male
  Weight: 58.8 kg

DRUGS (2)
  1. VFEND [Suspect]
     Indication: INFECTION PROPHYLAXIS
     Dosage: 200 MG, 2X/DAY
     Route: 048
     Dates: start: 20100112, end: 20100201
  2. BORTEZOMIB [Interacting]
     Indication: MULTIPLE MYELOMA
     Dosage: 1.4 MG/M2
     Route: 042
     Dates: start: 20100122, end: 20100201

REACTIONS (2)
  - DRUG INTERACTION [None]
  - ILEUS PARALYTIC [None]
